FAERS Safety Report 5186577-X (Version None)
Quarter: 2006Q4

REPORT INFORMATION
  Report Type: 
  Country: None (occurrence: None)
  Receive Date: 20061213
  Receipt Date: 20061204
  Transmission Date: 20070319
  Serious: Yes (Life-Threatening, Hospitalization)
  Sender: FDA-Public Use
  Company Number: S06-USA-03634-01

PATIENT
  Age: 46 Year
  Sex: Male
  Weight: 117.4816 kg

DRUGS (10)
  1. LEXAPRO [Suspect]
     Indication: ADJUSTMENT DISORDER WITH DEPRESSED MOOD
     Dosage: 140 MG ONCE PO
     Route: 048
     Dates: start: 20060905, end: 20060905
  2. LEXAPRO [Suspect]
     Indication: ADJUSTMENT DISORDER WITH DEPRESSED MOOD
     Dosage: 10 MG QD PO
     Route: 048
     Dates: start: 20031201, end: 20040101
  3. LEXAPRO [Suspect]
     Indication: ADJUSTMENT DISORDER WITH DEPRESSED MOOD
     Dosage: 20 MG QD PO
     Route: 048
     Dates: start: 20040101
  4. HYDROCHLOROTHIAZIDE [Concomitant]
  5. ATENOLOL [Concomitant]
  6. ACCUPRIL [Concomitant]
  7. AMITRIPTYLINE HCL [Concomitant]
  8. LISINOPRIL [Concomitant]
  9. PRILOSEC [Concomitant]
  10. NORCO (HYDROCODONE/ACETAMINOPHEN) [Concomitant]

REACTIONS (5)
  - ACCIDENTAL OVERDOSE [None]
  - LETHARGY [None]
  - MEDICATION ERROR [None]
  - NAUSEA [None]
  - RENAL FAILURE [None]
